FAERS Safety Report 20874739 (Version 1)
Quarter: 2022Q2

REPORT INFORMATION
  Report Type: Spontaneous
  Country: TR (occurrence: TR)
  Receive Date: 20220525
  Receipt Date: 20220525
  Transmission Date: 20220720
  Serious: Yes (Other)
  Sender: FDA-Public Use
  Company Number: TR-SUN PHARMACEUTICAL INDUSTRIES LTD-2022RR-338207

PATIENT
  Age: 67 Year
  Sex: Male

DRUGS (1)
  1. SUNITINIB [Suspect]
     Active Substance: SUNITINIB
     Indication: Renal cell carcinoma
     Dosage: 50 MILLIGRAM, DAILY (FOUR WEEKS ON TWO WEEKS OFF TREATMENT)
     Route: 065

REACTIONS (3)
  - Hypothyroidism [Unknown]
  - Oedema peripheral [Unknown]
  - Disease progression [Unknown]
